FAERS Safety Report 7358662-5 (Version None)
Quarter: 2011Q1

REPORT INFORMATION
  Report Type: 
  Country: None (occurrence: None)
  Receive Date: 20110317
  Receipt Date: 20110311
  Transmission Date: 20110831
  Serious: Yes (Other)
  Sender: FDA-Public Use
  Company Number: GB-GILEAD-2011-0036686

PATIENT
  Age: 31 Year
  Sex: Female

DRUGS (5)
  1. TRUVADA [Suspect]
     Indication: HIV INFECTION
     Route: 048
     Dates: start: 20101207
  2. REYATAZ [Concomitant]
     Route: 048
     Dates: start: 20101207
  3. ISENTRESS [Concomitant]
     Route: 048
     Dates: start: 20110218, end: 20110219
  4. NORVIR [Concomitant]
     Route: 048
     Dates: start: 20101207
  5. VIRAMUNE [Concomitant]
     Route: 048
     Dates: start: 20110218, end: 20110219

REACTIONS (3)
  - SMALL FOR DATES BABY [None]
  - PREGNANCY [None]
  - PREMATURE LABOUR [None]
